FAERS Safety Report 15471005 (Version 1)
Quarter: 2018Q4

REPORT INFORMATION
  Report Type: Spontaneous
  Country: DE (occurrence: DE)
  Receive Date: 20181006
  Receipt Date: 20181006
  Transmission Date: 20190205
  Serious: Yes (Other)
  Sender: FDA-Public Use
  Company Number: DE-AUROBINDO-AUR-APL-2018-048904

PATIENT
  Age: 32 Year
  Sex: Female

DRUGS (11)
  1. CEFUROXIME. [Suspect]
     Active Substance: CEFUROXIME
     Indication: EVIDENCE BASED TREATMENT
     Dosage: UNK
     Route: 065
  2. DEQUALINIUM CHLORIDE [Suspect]
     Active Substance: DEQUALINIUM CHLORIDE
     Indication: ESCHERICHIA INFECTION
     Dosage: UNK
     Route: 065
  3. FENOTEROL [Concomitant]
     Active Substance: FENOTEROL
     Dosage: UNK (12 ML/H)
     Route: 042
  4. MEROPENEM. [Suspect]
     Active Substance: MEROPENEM
     Indication: ACINETOBACTER INFECTION
     Dosage: 500 MILLIGRAM, 3 TIMES A DAY
     Route: 042
  5. FENOTEROL [Concomitant]
     Active Substance: FENOTEROL
     Indication: TOCOLYSIS
     Dosage: UNK (36 ML/H, MORE CONTRACTIONS IN SPITE OF  INCREASING DOSAGE) ()
     Route: 042
  6. BETAMETHASONE. [Concomitant]
     Active Substance: BETAMETHASONE
     Indication: MATERNAL THERAPY TO ENHANCE FOETAL LUNG MATURITY
     Dosage: UNK
     Route: 030
  7. CEFUROXIME. [Suspect]
     Active Substance: CEFUROXIME
     Indication: ANTIBIOTIC THERAPY
     Dosage: UNK
     Route: 065
  8. CEFUROXIME. [Suspect]
     Active Substance: CEFUROXIME
     Indication: VAGINAL INFECTION
     Dosage: UNK
     Route: 042
  9. MEROPENEM. [Suspect]
     Active Substance: MEROPENEM
     Dosage: 1000 MILLIGRAM, 3 TIMES A DAY
     Route: 042
  10. MEROPENEM. [Suspect]
     Active Substance: MEROPENEM
     Dosage: UNK
     Route: 042
  11. DEQUALINIUM CHLORIDE [Suspect]
     Active Substance: DEQUALINIUM CHLORIDE
     Indication: UTERINE CONTRACTIONS DURING PREGNANCY
     Dosage: 10 MILLIGRAM, DAILY
     Route: 067

REACTIONS (2)
  - Drug ineffective [Recovering/Resolving]
  - Drug resistance [Recovering/Resolving]
